FAERS Safety Report 10198182 (Version 1)
Quarter: 2014Q2

REPORT INFORMATION
  Report Type: Spontaneous
  Country: US (occurrence: US)
  Receive Date: 20140527
  Receipt Date: 20140527
  Transmission Date: 20141212
  Serious: No
  Sender: FDA-Public Use
  Company Number: US-NOVEN-13US007561

PATIENT
  Age: 20 Year
  Sex: Female

DRUGS (5)
  1. DAYTRANA [Suspect]
     Indication: CENTRAL NERVOUS SYSTEM STIMULATION
     Dosage: 15 MG DAILY FOR 9 HOURS
     Route: 062
     Dates: start: 20130814
  2. SYNTHROID [Concomitant]
     Indication: HYPOTHYROIDISM
     Route: 048
  3. DEXMETHYLPHENIDATE [Concomitant]
     Indication: PRODUCT USED FOR UNKNOWN INDICATION
     Route: 048
  4. LOESTRIN [Concomitant]
     Indication: CONTRACEPTION
     Route: 048
  5. PRAMIPEXOLE [Concomitant]
     Indication: SLEEP DISORDER
     Route: 048

REACTIONS (5)
  - Dysgeusia [Not Recovered/Not Resolved]
  - Drug ineffective [Not Recovered/Not Resolved]
  - Off label use [Not Recovered/Not Resolved]
  - Incorrect drug administration duration [Recovered/Resolved]
  - Product quality issue [Not Recovered/Not Resolved]
